FAERS Safety Report 24928907 (Version 1)
Quarter: 2025Q1

REPORT INFORMATION
  Report Type: Spontaneous
  Country: US (occurrence: US)
  Receive Date: 20250205
  Receipt Date: 20250205
  Transmission Date: 20250408
  Serious: No
  Sender: pharmaAND
  Company Number: US-Pharmaand-2024000771

PATIENT
  Sex: Female

DRUGS (1)
  1. RUBRACA [Suspect]
     Active Substance: RUCAPARIB CAMSYLATE
     Indication: Ovarian cancer
     Dosage: TWO 200MG TABLETS BY MOUTH TWICEDAILY
     Route: 048

REACTIONS (2)
  - Carbohydrate antigen 125 increased [Unknown]
  - Drug ineffective [Recovered/Resolved]
